FAERS Safety Report 21626098 (Version 1)
Quarter: 2022Q4

REPORT INFORMATION
  Report Type: Spontaneous
  Country: US (occurrence: None)
  Receive Date: 20221122
  Receipt Date: 20221122
  Transmission Date: 20230113
  Serious: No
  Sender: FDA-Public Use
  Company Number: US-ROCHE-3031112

PATIENT
  Sex: Male

DRUGS (1)
  1. PULMOZYME [Suspect]
     Active Substance: DORNASE ALFA
     Indication: Pancreatic failure
     Dosage: INHALE 1 AMPULE 2.5MG VIA NEBULIZER DAILY, PULMOZYME SOLUTION 1MG/ML
     Route: 065
     Dates: start: 20220112

REACTIONS (3)
  - Off label use [Unknown]
  - Coronavirus infection [Not Recovered/Not Resolved]
  - Wheezing [Not Recovered/Not Resolved]
